FAERS Safety Report 15451406 (Version 1)
Quarter: 2018Q4

REPORT INFORMATION
  Report Type: Other
  Country: US (occurrence: ES)
  Receive Date: 20181001
  Receipt Date: 20181001
  Transmission Date: 20190204
  Serious: Yes (Other)
  Sender: FDA-Public Use
  Company Number: ES-BRECKENRIDGE PHARMACEUTICAL, INC.-2055524

PATIENT
  Age: 29 Year
  Sex: Male

DRUGS (1)
  1. POLYETHYLENE GLYCOL (PEG) [Suspect]
     Active Substance: POLYETHYLENE GLYCOLS

REACTIONS (1)
  - Type I hypersensitivity [None]
